FAERS Safety Report 16024154 (Version 4)
Quarter: 2019Q1

REPORT INFORMATION
  Report Type: Report from Study
  Country: GB (occurrence: GB)
  Receive Date: 20190301
  Receipt Date: 20190329
  Transmission Date: 20190418
  Serious: Yes (Life-Threatening)
  Sender: FDA-Public Use
  Company Number: GB-PFIZER INC-2019089842

PATIENT
  Weight: 72 kg

DRUGS (12)
  1. OXYCODONE [Concomitant]
     Active Substance: OXYCODONE
     Indication: ANALGESIC THERAPY
     Dosage: 45 MG/ML, (OTHER, CUTANEOUS INFUSION)N)
     Dates: start: 20190218
  2. MEROPENEM. [Concomitant]
     Active Substance: MEROPENEM
     Indication: NEUTROPENIC SEPSIS
     Dosage: 500 MG/ML, 4X/DAY
     Dates: start: 20190218
  3. GENTAMICIN. [Concomitant]
     Active Substance: GENTAMICIN
     Indication: NEUTROPENIC SEPSIS
     Dosage: 500 MG/ML, (OTHER, STAT)
     Dates: start: 20190218, end: 20190218
  4. GEMTUZUMAB OZOGAMICIN [Suspect]
     Active Substance: GEMTUZUMAB OZOGAMICIN
     Indication: ACUTE MYELOID LEUKAEMIA
     Dosage: 5.0 MG, UNK (OTHER)
     Route: 042
     Dates: start: 20190211, end: 20190211
  5. MITOXANTRONE HCL [Suspect]
     Active Substance: MITOXANTRONE HYDROCHLORIDE
     Indication: ACUTE MYELOID LEUKAEMIA
     Dosage: 24 MG/M2, DAILY
     Route: 042
     Dates: start: 20190206, end: 20190209
  6. CYTARABINE. [Suspect]
     Active Substance: CYTARABINE
     Indication: ACUTE MYELOID LEUKAEMIA
     Dosage: 200 MG, 2X/DAY
     Route: 042
     Dates: start: 20190206, end: 20190215
  7. AMBISOME [Concomitant]
     Active Substance: AMPHOTERICIN B
     Indication: FUNGAL INFECTION
     Dosage: 250 MG/ML, DAILY
     Dates: start: 20190215
  8. PANTOPRAZOLE [Concomitant]
     Active Substance: PANTOPRAZOLE
     Indication: OESOPHAGITIS
     Dosage: 80 MG/ML, DAILY
     Dates: start: 20190222
  9. TRANEXAMIC ACID. [Concomitant]
     Active Substance: TRANEXAMIC ACID
     Indication: HAEMOPTYSIS
     Dosage: 1 G, 4X/DAY
     Dates: start: 20190217
  10. TEICOPLANIN [Concomitant]
     Active Substance: TEICOPLANIN
     Indication: NEUTROPENIC SEPSIS
     Dosage: 400 MG/ML, DAILY
     Dates: start: 20190224
  11. AMIKACIN. [Concomitant]
     Active Substance: AMIKACIN
     Indication: NEUTROPENIC SEPSIS
     Dosage: 900 MG/ML, (OTHER, STAT)
     Dates: start: 20190224, end: 20190224
  12. MIDAZOLAM [Concomitant]
     Active Substance: MIDAZOLAM HYDROCHLORIDE
     Indication: ANALGESIC THERAPY
     Dosage: 5 MG/ML, (OTHER, CUTANEUS INFUSION)
     Dates: start: 20190218

REACTIONS (3)
  - Febrile neutropenia [Recovering/Resolving]
  - Bronchial obstruction [Recovering/Resolving]
  - Cardiac arrest [Not Recovered/Not Resolved]

NARRATIVE: CASE EVENT DATE: 20190226
